FAERS Safety Report 12894447 (Version 2)
Quarter: 2016Q4

REPORT INFORMATION
  Report Type: Report from Study
  Country: None (occurrence: US)
  Receive Date: 20161028
  Receipt Date: 20161220
  Transmission Date: 20170207
  Serious: Yes (Other)
  Sender: FDA-Public Use
  Company Number: US-ABBVIE-16K-163-1760360-00

PATIENT
  Age: 45 Year
  Sex: Female
  Weight: 87.62 kg

DRUGS (2)
  1. HUMIRA [Suspect]
     Active Substance: ADALIMUMAB
     Route: 058
     Dates: start: 201610
  2. HUMIRA [Suspect]
     Active Substance: ADALIMUMAB
     Indication: PSORIASIS
     Route: 058
     Dates: start: 201601, end: 201609

REACTIONS (11)
  - Wheezing [Recovering/Resolving]
  - Ear discomfort [Recovering/Resolving]
  - Diverticulitis [Recovering/Resolving]
  - Eyelid margin crusting [Recovered/Resolved]
  - Eyelid margin crusting [Not Recovered/Not Resolved]
  - Wheezing [Recovered/Resolved]
  - Eye infection [Recovered/Resolved]
  - Lower respiratory tract infection [Recovered/Resolved]
  - Macular degeneration [Not Recovered/Not Resolved]
  - Sinusitis [Not Recovered/Not Resolved]
  - Lower respiratory tract infection [Recovering/Resolving]

NARRATIVE: CASE EVENT DATE: 201607
